FAERS Safety Report 25251353 (Version 1)
Quarter: 2025Q2

REPORT INFORMATION
  Report Type: Spontaneous
  Country: US (occurrence: US)
  Receive Date: 20250429
  Receipt Date: 20250429
  Transmission Date: 20250716
  Serious: Yes (Other)
  Sender: RECKITT BENCKISER
  Company Number: US-INDIVIOR UK LIMITED-INDV-161034-2025

PATIENT
  Age: 38 Year
  Sex: Male

DRUGS (2)
  1. BUPRENORPHINE [Suspect]
     Active Substance: BUPRENORPHINE
     Indication: Drug use disorder
     Dosage: 16 MILLIGRAM, QD
     Route: 065
  2. BUPRENORPHINE [Suspect]
     Active Substance: BUPRENORPHINE
     Dosage: 2 MILLIGRAM, TID
     Route: 065

REACTIONS (7)
  - Malignant neoplasm progression [Unknown]
  - Cancer pain [Unknown]
  - Aggression [Unknown]
  - Mucosal inflammation [Unknown]
  - Inappropriate schedule of product discontinuation [Recovered/Resolved]
  - Inappropriate schedule of product administration [Recovered/Resolved]
  - Drug abuse [Recovered/Resolved]
